FAERS Safety Report 5050991-3 (Version None)
Quarter: 2006Q3

REPORT INFORMATION
  Report Type: 
  Country: None (occurrence: None)
  Receive Date: 20060714
  Receipt Date: 20060601
  Transmission Date: 20061208
  Serious: Yes (Other)
  Sender: FDA-Public Use
  Company Number: PHFR2006MT01881

PATIENT
  Age: 55 Year
  Sex: Female
  Weight: 60 kg

DRUGS (4)
  1. DIOVAN [Suspect]
     Indication: CORONARY ARTERY BYPASS
     Dosage: 160 MG/DAY
     Route: 048
     Dates: start: 20051101, end: 20060602
  2. DIOVAN [Suspect]
     Dosage: 80 MG/DAY
     Route: 048
     Dates: start: 20060603
  3. BURINEX [Concomitant]
     Dosage: 1 MG, BID
     Route: 065
  4. ATENOLOL [Concomitant]
     Dosage: 50 MG, BID
     Route: 065

REACTIONS (4)
  - ANGIONEUROTIC OEDEMA [None]
  - BLOOD PRESSURE INCREASED [None]
  - LYMPHADENOPATHY [None]
  - NEOPLASM MALIGNANT [None]
